FAERS Safety Report 5223508-8 (Version None)
Quarter: 2007Q1

REPORT INFORMATION
  Report Type: 
  Country: None (occurrence: None)
  Receive Date: 20070125
  Receipt Date: 20070112
  Transmission Date: 20070707
  Serious: Yes (Hospitalization)
  Sender: FDA-Public Use
  Company Number: 2006BI017970

PATIENT
  Age: 83 Year
  Sex: Female
  Weight: 61.6 kg

DRUGS (22)
  1. ZEVALIN [Suspect]
     Indication: B-CELL LYMPHOMA
  2. RITUXAN [Concomitant]
  3. THYROID TAB [Concomitant]
  4. CYMBALTA [Concomitant]
  5. LIPITOR [Concomitant]
  6. PLAVIX [Concomitant]
  7. PREVACID [Concomitant]
  8. DARVON [Concomitant]
  9. ALLOPURINOL SODIUM [Concomitant]
  10. NEURONTIN [Concomitant]
  11. CYCLOPHOSPHAMIDE [Concomitant]
  12. DOXORUBICIN HCL [Concomitant]
  13. ORAL PREDNISONE [Concomitant]
  14. VINCRISTINE [Concomitant]
  15. NEULASTA [Concomitant]
  16. SPRIRIVA [Concomitant]
  17. FLOVENT [Concomitant]
  18. ALLOPURINOL SODIUM [Concomitant]
  19. NEXIUM [Concomitant]
  20. XOPENEX [Concomitant]
  21. ATROVENT [Concomitant]
  22. SENEKOT-S [Concomitant]

REACTIONS (11)
  - BLOOD MAGNESIUM DECREASED [None]
  - ERYTHEMA [None]
  - FATIGUE [None]
  - FEBRILE NEUTROPENIA [None]
  - HAEMOGLOBIN DECREASED [None]
  - HERPES SIMPLEX [None]
  - PARAINFLUENZAE VIRUS INFECTION [None]
  - RALES [None]
  - TACHYCARDIA [None]
  - TONSILLAR DISORDER [None]
  - WHITE BLOOD CELL COUNT DECREASED [None]
